FAERS Safety Report 23644693 (Version 1)
Quarter: 2024Q1

REPORT INFORMATION
  Report Type: Spontaneous
  Country: US (occurrence: None)
  Receive Date: 20240317
  Receipt Date: 20240317
  Transmission Date: 20240410
  Serious: No
  Sender: FDA-Public Use
  Company Number: None

PATIENT
  Age: 53 Year
  Sex: Female
  Weight: 64.35 kg

DRUGS (1)
  1. BUDESONIDE [Suspect]
     Active Substance: BUDESONIDE
     Indication: Rhinitis
     Dates: start: 20240311, end: 20240317

REACTIONS (4)
  - Off label use [None]
  - Sleep terror [None]
  - Middle insomnia [None]
  - Screaming [None]

NARRATIVE: CASE EVENT DATE: 20240316
